FAERS Safety Report 6797170-7 (Version None)
Quarter: 2010Q2

REPORT INFORMATION
  Report Type: 
  Country: None (occurrence: None)
  Receive Date: 20100618
  Receipt Date: 20100609
  Transmission Date: 20101027
  Serious: Yes (Other)
  Sender: FDA-Public Use
  Company Number: 2010SP032502

PATIENT
  Age: 32 Year
  Sex: Female
  Weight: 100 kg

DRUGS (8)
  1. CERAZETTE (DESOGESTREL /00754001/) [Suspect]
     Indication: DYSMENORRHOEA
     Dosage: 1 DF; QD
     Dates: start: 20081203, end: 20090528
  2. BUSCOPAN [Concomitant]
  3. METAMUCIL-2 [Concomitant]
  4. FORLAX [Concomitant]
  5. SCOPOLAMINE BUTYL [Concomitant]
  6. PSYLLIUM SEEDS [Concomitant]
  7. OXAZEPAM [Concomitant]
  8. MACROGOL [Concomitant]

REACTIONS (8)
  - ASTHENIA [None]
  - CONSTIPATION [None]
  - GASTROINTESTINAL DISORDER [None]
  - HAEMORRHAGE [None]
  - IMPAIRED WORK ABILITY [None]
  - OFF LABEL USE [None]
  - OVARIAN CYST [None]
  - WEIGHT DECREASED [None]
